FAERS Safety Report 25670657 (Version 1)
Quarter: 2025Q3

REPORT INFORMATION
  Report Type: Spontaneous
  Country: BR (occurrence: BR)
  Receive Date: 20250812
  Receipt Date: 20250812
  Transmission Date: 20251021
  Serious: Yes (Hospitalization, Other)
  Sender: COLGATE
  Company Number: BR-COLGATE PALMOLIVE COMPANY-20250701539

PATIENT
  Sex: Female

DRUGS (3)
  1. STANNOUS FLUORIDE [Suspect]
     Active Substance: STANNOUS FLUORIDE
     Indication: Gingival bleeding
     Dates: start: 20250621
  2. STANNOUS FLUORIDE [Suspect]
     Active Substance: STANNOUS FLUORIDE
     Indication: Gingival bleeding
     Dates: start: 20250621
  3. PERIOGARD [Suspect]
     Active Substance: CHLORHEXIDINE GLUCONATE
     Indication: Gingival bleeding
     Dates: start: 20250621

REACTIONS (8)
  - Dry mouth [Unknown]
  - Paraesthesia oral [Unknown]
  - Lip swelling [Unknown]
  - Palatal swelling [Unknown]
  - Swollen tongue [Unknown]
  - Dyspnoea [Unknown]
  - Dysphagia [Unknown]
  - Oxygen saturation decreased [Unknown]

NARRATIVE: CASE EVENT DATE: 20250621
